FAERS Safety Report 8909236 (Version 2)
Quarter: 2013Q1

REPORT INFORMATION
  Report Type: Spontaneous
  Country: DE (occurrence: None)
  Receive Date: 20121107
  Receipt Date: 20121121
  Transmission Date: 20140127
  Serious: Yes (Hospitalization)
  Sender: FDA-Public Use
  Company Number: 219263

PATIENT
  Age: 60 Year
  Sex: Male
  Weight: 143 kg

DRUGS (2)
  1. INNOHEP (TINZAPARIN SODIUM) [Suspect]
     Indication: POSTOPERATIVE CARE
     Dates: start: 20121025
  2. INNOHEP (TINZAPARIN SODIUM) [Suspect]
     Indication: PROPHYLAXIS
     Dates: start: 20121025

REACTIONS (2)
  - Pulmonary embolism [None]
  - Incorrect drug administration duration [None]
